FAERS Safety Report 5009714-6 (Version None)
Quarter: 2006Q2

REPORT INFORMATION
  Report Type: 
  Country: None (occurrence: None)
  Receive Date: 20060524
  Receipt Date: 20060511
  Transmission Date: 20061013
  Serious: Yes (Hospitalization)
  Sender: FDA-Public Use
  Company Number: PHHO2006AR07877

PATIENT
  Age: 51 Year
  Sex: Female

DRUGS (1)
  1. ZELMAC / HTF 919A [Suspect]
     Dosage: 4 TABLETS DAILY
     Route: 048

REACTIONS (3)
  - GASTROINTESTINAL DISORDER [None]
  - RECTOCELE [None]
  - RECTOCELE REPAIR [None]
